FAERS Safety Report 22157945 (Version 2)
Quarter: 2023Q2

REPORT INFORMATION
  Report Type: Spontaneous
  Country: PT (occurrence: PT)
  Receive Date: 20230330
  Receipt Date: 20230512
  Transmission Date: 20230722
  Serious: Yes (Hospitalization, Other)
  Sender: FDA-Public Use
  Company Number: PT-TEVA-2023-PT-2870073

PATIENT
  Age: 53 Year
  Sex: Female

DRUGS (2)
  1. ALPRAZOLAM [Suspect]
     Active Substance: ALPRAZOLAM
     Indication: Headache
     Dosage: 20 PILLS OF ALPRAZOLAM 0.25MG (TOTAL DOSE 5 MG)
     Route: 048
  2. ALPRAZOLAM [Suspect]
     Active Substance: ALPRAZOLAM
     Indication: Headache

REACTIONS (5)
  - Toxicity to various agents [Unknown]
  - Confusional state [Recovered/Resolved]
  - Hypertension [Unknown]
  - Posterior reversible encephalopathy syndrome [Unknown]
  - Intentional overdose [Unknown]
